FAERS Safety Report 6684274-2 (Version None)
Quarter: 2010Q2

REPORT INFORMATION
  Report Type: 
  Country: None (occurrence: None)
  Receive Date: 20100416
  Receipt Date: 20100407
  Transmission Date: 20101027
  Serious: Yes (Hospitalization)
  Sender: FDA-Public Use
  Company Number: US-JNJFOC-20100403007

PATIENT
  Sex: Female
  Weight: 49.9 kg

DRUGS (21)
  1. FENTANYL CITRATE [Suspect]
     Indication: MUSCULOSKELETAL PAIN
     Route: 062
  2. FENTANYL CITRATE [Suspect]
     Indication: HEADACHE
     Route: 062
  3. FENTANYL CITRATE [Suspect]
     Indication: NECK PAIN
     Route: 062
  4. FENTANYL CITRATE [Suspect]
     Indication: BACK PAIN
     Route: 062
  5. FENTANYL CITRATE [Suspect]
     Route: 062
  6. FENTANYL CITRATE [Suspect]
     Route: 062
  7. FENTANYL CITRATE [Suspect]
     Route: 062
  8. FENTANYL CITRATE [Suspect]
     Route: 062
  9. ALPRAZOLAM [Concomitant]
     Indication: ANXIETY
     Dosage: 1/2 TABLET
     Route: 048
  10. CYMBALTA [Concomitant]
     Indication: ANXIETY
     Route: 048
  11. MIRTAZAPINE [Concomitant]
     Indication: SLEEP DISORDER
     Route: 048
  12. FUROSEMIDE [Concomitant]
     Indication: DIURETIC THERAPY
     Route: 048
  13. LABETALOL HCL [Concomitant]
     Indication: HYPERTENSION
     Route: 048
  14. MINOXIDIL [Concomitant]
     Indication: HYPERTENSION
     Dosage: 1 1/4 TABLET 2 1/2 TABLET TWICE DAILY
     Route: 048
  15. NIFEDIPINE [Concomitant]
     Indication: HYPERTENSION
     Route: 048
  16. CYCLOBENZAPRINE [Concomitant]
     Indication: MUSCLE SPASMS
     Route: 048
  17. GABAPENTIN [Concomitant]
     Indication: NECK PAIN
     Route: 048
  18. HYDROCODONE BITARTRATE [Concomitant]
     Indication: BREAKTHROUGH PAIN
     Dosage: 7.5/500MG
     Route: 048
  19. BONIVA [Concomitant]
     Indication: BONE DISORDER
     Route: 048
  20. SYMBICORT [Concomitant]
     Indication: INHALATION THERAPY
     Dosage: 2 PUFFS
     Route: 045
  21. ESTRING [Concomitant]
     Indication: HORMONE REPLACEMENT THERAPY
     Route: 067

REACTIONS (6)
  - BEDRIDDEN [None]
  - INFECTION [None]
  - KNEE OPERATION [None]
  - NAUSEA [None]
  - PRODUCT QUALITY ISSUE [None]
  - WRONG TECHNIQUE IN DRUG USAGE PROCESS [None]
